FAERS Safety Report 23697634 (Version 1)
Quarter: 2024Q2

REPORT INFORMATION
  Report Type: Spontaneous
  Country: US (occurrence: US)
  Receive Date: 20240402
  Receipt Date: 20240402
  Transmission Date: 20240716
  Serious: Yes (Life-Threatening, Hospitalization)
  Sender: FDA-Public Use
  Company Number: US-LEADINGPHARMA-US-2024LEALIT00070

PATIENT
  Age: 62 Year
  Sex: Female

DRUGS (3)
  1. LIDOCAINE [Suspect]
     Active Substance: LIDOCAINE
     Indication: Pain
     Route: 062
  2. OXYCODONE [Concomitant]
     Active Substance: OXYCODONE\OXYCODONE HYDROCHLORIDE
     Route: 065
  3. GABAPENTIN [Concomitant]
     Active Substance: GABAPENTIN
     Route: 065

REACTIONS (1)
  - Methaemoglobinaemia [Recovered/Resolved]
